FAERS Safety Report 9343749 (Version 1)
Quarter: 2013Q2

REPORT INFORMATION
  Report Type: Spontaneous
  Country: US (occurrence: US)
  Receive Date: 20130612
  Receipt Date: 20130612
  Transmission Date: 20140414
  Serious: No
  Sender: FDA-Public Use
  Company Number: US-BAYER-2013-068645

PATIENT
  Age: 46 Year
  Sex: Male
  Weight: 72.56 kg

DRUGS (4)
  1. ALEVE TABLET [Suspect]
     Indication: BACK PAIN
     Dosage: 2 DF, PRN
     Route: 048
     Dates: start: 201304
  2. LISINOPRIL [Concomitant]
  3. OMEPRAZOLE [Concomitant]
  4. GABAPENTIN [Concomitant]

REACTIONS (3)
  - Drug ineffective [None]
  - Incorrect dose administered [None]
  - Incorrect dose administered [None]
